FAERS Safety Report 15117435 (Version 1)
Quarter: 2018Q3

REPORT INFORMATION
  Report Type: Spontaneous
  Country: FR (occurrence: FR)
  Receive Date: 20180706
  Receipt Date: 20180706
  Transmission Date: 20181010
  Serious: Yes (Other)
  Sender: FDA-Public Use
  Company Number: FR-BEH-2018092415

PATIENT
  Age: 29 Year
  Sex: Male
  Weight: 89 kg

DRUGS (2)
  1. PRIVIGEN [Suspect]
     Active Substance: HUMAN IMMUNOGLOBULIN G
     Indication: MULTIFOCAL MOTOR NEUROPATHY
     Dosage: 20 G, UNK
     Route: 041
     Dates: start: 20180507, end: 20180510
  2. PRIVIGEN [Suspect]
     Active Substance: HUMAN IMMUNOGLOBULIN G
     Dosage: 40 G, UNK
     Route: 041
     Dates: start: 20180507, end: 20180510

REACTIONS (7)
  - Pyrexia [Recovered/Resolved]
  - Chills [Recovered/Resolved]
  - Headache [Recovered/Resolved]
  - Tachycardia [Recovered/Resolved]
  - Vomiting [Recovered/Resolved]
  - C-reactive protein increased [Recovering/Resolving]
  - Procalcitonin increased [Recovering/Resolving]

NARRATIVE: CASE EVENT DATE: 20180509
